FAERS Safety Report 16469963 (Version 1)
Quarter: 2019Q2

REPORT INFORMATION
  Report Type: Spontaneous
  Country: US (occurrence: US)
  Receive Date: 20190514
  Receipt Date: 20190514
  Transmission Date: 20190711
  Serious: Yes (Hospitalization)
  Sender: FDA-Public Use
  Company Number: None

PATIENT
  Sex: Male

DRUGS (3)
  1. HUMIRA [Suspect]
     Active Substance: ADALIMUMAB
     Indication: PSORIASIS
     Route: 058
  2. CLOBETASOL OINTMENT [Concomitant]
     Active Substance: CLOBETASOL
  3. ONDANSOTRON OMT [Concomitant]

REACTIONS (5)
  - Dehydration [None]
  - Diarrhoea [None]
  - Contusion [None]
  - Nausea [None]
  - Vomiting [None]
